FAERS Safety Report 13726761 (Version 2)
Quarter: 2017Q3

REPORT INFORMATION
  Report Type: Spontaneous
  Country: US (occurrence: US)
  Receive Date: 20170706
  Receipt Date: 20170710
  Transmission Date: 20171127
  Serious: No
  Sender: FDA-Public Use
  Company Number: US-PFIZER INC-2017291031

PATIENT
  Age: 71 Year
  Sex: Female

DRUGS (1)
  1. METHOTREXATE SODIUM. [Suspect]
     Active Substance: METHOTREXATE SODIUM
     Dosage: UNK

REACTIONS (13)
  - Photophobia [Unknown]
  - Peripheral swelling [Unknown]
  - Synovitis [Unknown]
  - Dyspnoea [Unknown]
  - Cough [Unknown]
  - Alopecia [Unknown]
  - Tenderness [Unknown]
  - Joint range of motion decreased [Unknown]
  - Tinnitus [Unknown]
  - Asthenia [Unknown]
  - Musculoskeletal stiffness [Unknown]
  - Abdominal pain [Unknown]
  - Paraesthesia [Unknown]
